FAERS Safety Report 24777466 (Version 6)
Quarter: 2025Q1

REPORT INFORMATION
  Report Type: Spontaneous
  Country: US (occurrence: US)
  Receive Date: 20241226
  Receipt Date: 20250324
  Transmission Date: 20250408
  Serious: No
  Sender: PFIZER
  Company Number: US-PFIZER INC-202400328745

PATIENT
  Age: 11 Year
  Sex: Female
  Weight: 86 kg

DRUGS (1)
  1. GENOTROPIN [Suspect]
     Active Substance: SOMATROPIN
     Indication: Turner^s syndrome
     Dosage: 2 MG, DAILY
     Dates: start: 202412

REACTIONS (3)
  - Device difficult to use [Unknown]
  - Device delivery system issue [Unknown]
  - Device leakage [Unknown]
